FAERS Safety Report 6186925-8 (Version None)
Quarter: 2009Q2

REPORT INFORMATION
  Report Type: 
  Country: None (occurrence: None)
  Receive Date: 20090508
  Receipt Date: 20090508
  Transmission Date: 20091009
  Serious: Yes (Life-Threatening, Hospitalization, Disabling)
  Sender: FDA-Public Use
  Company Number: None

PATIENT
  Age: 20 Year
  Sex: Female
  Weight: 50.8029 kg

DRUGS (1)
  1. LABETALOL HCL [Suspect]
     Indication: HYPERTENSIVE ENCEPHALOPATHY
     Dosage: 200 MG Q24H IV
     Route: 042
     Dates: start: 20090504, end: 20090504

REACTIONS (3)
  - BLOOD POTASSIUM INCREASED [None]
  - BLOOD PRESSURE DECREASED [None]
  - BRADYCARDIA [None]
